FAERS Safety Report 4891935-4 (Version None)
Quarter: 2006Q1

REPORT INFORMATION
  Report Type: 
  Country: None (occurrence: None)
  Receive Date: 20060126
  Receipt Date: 20060116
  Transmission Date: 20060701
  Serious: Yes (Hospitalization, Other)
  Sender: FDA-Public Use
  Company Number: BE-ABBOTT-06P-013-0322445-00

PATIENT
  Sex: Female
  Weight: 70 kg

DRUGS (5)
  1. HUMIRA [Suspect]
     Indication: RHEUMATOID ARTHRITIS
     Route: 058
     Dates: start: 20050121
  2. HUMIRA [Suspect]
  3. FUROSEMIDE [Concomitant]
     Indication: DRUG USE FOR UNKNOWN INDICATION
  4. METHYLPREDNISOLONE [Concomitant]
     Indication: DRUG USE FOR UNKNOWN INDICATION
     Dosage: 4MG OR 8MG
  5. PARACETAMOL [Concomitant]
     Indication: PAIN

REACTIONS (7)
  - ASTHENIA [None]
  - FEELING COLD [None]
  - IMPAIRED GASTRIC EMPTYING [None]
  - IRON DEFICIENCY ANAEMIA [None]
  - OESOPHAGEAL ACHALASIA [None]
  - OESOPHAGITIS [None]
  - VERTIGO [None]
